FAERS Safety Report 5030666-7 (Version None)
Quarter: 2006Q2

REPORT INFORMATION
  Report Type: 
  Country: None (occurrence: None)
  Receive Date: 20060615
  Receipt Date: 20060602
  Transmission Date: 20061013
  Serious: Yes (Hospitalization)
  Sender: FDA-Public Use
  Company Number: 2006071754

PATIENT
  Age: 50 Year
  Sex: Female

DRUGS (10)
  1. ANSATIPINE (RIFABUTIN) [Suspect]
     Indication: TUBERCULOSIS
     Dosage: 150 MG (150 MG),ORAL
     Route: 048
     Dates: start: 20060217, end: 20060316
  2. PIRILENE (PYRAZINAMIDE) [Suspect]
     Indication: TUBERCULOSIS
     Dosage: 1.5 MG GRAN (1.5 GRAM), ORAL
     Route: 048
     Dates: start: 20060217, end: 20060316
  3. MYAMBUTOL [Suspect]
     Indication: TUBERCULOSIS
     Dosage: 1.2 GRAM (1.2 GRAM),ORAL
     Route: 048
     Dates: start: 20060217, end: 20060316
  4. RIMIFON [Suspect]
     Indication: TUBERCULOSIS
     Dosage: 300 MG (200 MG), ORAL
     Route: 048
     Dates: start: 20060217, end: 20060316
  5. CLINDAMYCIN HCL [Concomitant]
  6. PYRIMETHAMINE TAB [Concomitant]
  7. VIREAD [Concomitant]
  8. EMTRICITABINE (EMTRICITABINE) [Concomitant]
  9. WELLVONE (ATOVAQUONE) [Concomitant]
  10. TRUVADA [Concomitant]

REACTIONS (6)
  - CONJUNCTIVAL DISORDER [None]
  - EYE DISORDER [None]
  - ORAL MUCOSAL DISORDER [None]
  - PRURIGO [None]
  - PRURITUS [None]
  - RASH MACULO-PAPULAR [None]
